FAERS Safety Report 13075978 (Version 1)
Quarter: 2016Q4

REPORT INFORMATION
  Report Type: Spontaneous
  Country: CN (occurrence: CN)
  Receive Date: 20161230
  Receipt Date: 20161230
  Transmission Date: 20170207
  Serious: Yes (Other)
  Sender: FDA-Public Use
  Company Number: CN-ELI_LILLY_AND_COMPANY-CN201612009146

PATIENT

DRUGS (1)
  1. HUMALOG MIX50/50 [Suspect]
     Active Substance: INSULIN LISPRO
     Indication: DIABETES MELLITUS
     Dosage: 34 U, QD
     Route: 058
     Dates: start: 2011

REACTIONS (3)
  - Amnesia [Unknown]
  - Cerebellar atrophy [Unknown]
  - Blood glucose increased [Unknown]
